FAERS Safety Report 16639234 (Version 1)
Quarter: 2019Q3

REPORT INFORMATION
  Report Type: Report from Study
  Country: BR (occurrence: BR)
  Receive Date: 20190726
  Receipt Date: 20190726
  Transmission Date: 20191004
  Serious: Yes (Life-Threatening)
  Sender: FDA-Public Use
  Company Number: PHHY2019BR172416

PATIENT
  Age: 39 Year
  Sex: Male

DRUGS (1)
  1. COSENTYX [Suspect]
     Active Substance: SECUKINUMAB
     Indication: PRODUCT USED FOR UNKNOWN INDICATION
     Dosage: UNK
     Route: 065
     Dates: start: 20190202

REACTIONS (16)
  - Asthenia [Unknown]
  - Gastrointestinal disorder [Unknown]
  - Muscular weakness [Unknown]
  - Retinal detachment [Unknown]
  - Hypoacusis [Unknown]
  - Vision blurred [Unknown]
  - Visual impairment [Unknown]
  - Macule [Unknown]
  - Weight decreased [Unknown]
  - Abdominal pain [Unknown]
  - Influenza [Unknown]
  - Myalgia [Unknown]
  - Tinnitus [Unknown]
  - Inflammation [Unknown]
  - Lung disorder [Unknown]
  - Fatigue [Unknown]

NARRATIVE: CASE EVENT DATE: 201904
